FAERS Safety Report 14668163 (Version 1)
Quarter: 2018Q1

REPORT INFORMATION
  Report Type: Spontaneous
  Country: US (occurrence: US)
  Receive Date: 20180321
  Receipt Date: 20180321
  Transmission Date: 20180509
  Serious: No
  Sender: FDA-Public Use
  Company Number: None

PATIENT
  Sex: Female

DRUGS (2)
  1. PROGESTIN [Concomitant]
     Active Substance: PROGESTERONE
  2. ESTROGEL [Suspect]
     Active Substance: ESTRADIOL

REACTIONS (3)
  - Therapy change [None]
  - Sluggishness [None]
  - Drug ineffective [None]
